FAERS Safety Report 13856438 (Version 2)
Quarter: 2017Q3

REPORT INFORMATION
  Report Type: Report from Study
  Country: JP (occurrence: JP)
  Receive Date: 20170810
  Receipt Date: 20170829
  Transmission Date: 20171127
  Serious: Yes (Other)
  Sender: FDA-Public Use
  Company Number: JP-DSJP-DSJ-2017-128044

PATIENT

DRUGS (7)
  1. EDOXABAN [Suspect]
     Active Substance: EDOXABAN TOSYLATE
     Indication: ATRIAL FIBRILLATION
     Dosage: 30 MG, QD
     Route: 048
     Dates: start: 20150904, end: 20150917
  2. ELIQUIS [Concomitant]
     Active Substance: APIXABAN
     Dosage: 10MG/DAY
     Route: 048
     Dates: end: 20150903
  3. LUPRAC [Concomitant]
     Active Substance: TORSEMIDE
     Dosage: 4MG/DAY
     Route: 048
  4. PREDONINE [Concomitant]
     Active Substance: PREDNISOLONE
     Dosage: 5MG/DAY
     Route: 048
     Dates: start: 20150925
  5. CELECOX [Concomitant]
     Active Substance: CELECOXIB
     Dosage: 200MG/DAY
     Route: 048
  6. GOODMIN [Concomitant]
     Active Substance: BROTIZOLAM
     Dosage: 0.5MG/DAY
     Route: 048
  7. EPINASTINE HYDROCHLORIDE. [Concomitant]
     Active Substance: EPINASTINE HYDROCHLORIDE
     Dosage: 20MG/DAY
     Route: 048

REACTIONS (1)
  - Platelet count decreased [Not Recovered/Not Resolved]

NARRATIVE: CASE EVENT DATE: 20150916
